FAERS Safety Report 14165003 (Version 5)
Quarter: 2017Q4

REPORT INFORMATION
  Report Type: Spontaneous
  Country: US (occurrence: US)
  Receive Date: 20171107
  Receipt Date: 20171212
  Transmission Date: 20180321
  Serious: No
  Sender: FDA-Public Use
  Company Number: US-PFIZER INC-2017477590

PATIENT
  Age: 65 Year
  Sex: Female
  Weight: 68 kg

DRUGS (4)
  1. SYNTHROID [Concomitant]
     Active Substance: LEVOTHYROXINE SODIUM
     Indication: THYROID DISORDER
  2. SYNTHROID [Concomitant]
     Active Substance: LEVOTHYROXINE SODIUM
     Indication: HORMONE LEVEL ABNORMAL
     Dosage: 0.175 MG, 1X/DAY
     Route: 048
  3. ESTROGEN [Concomitant]
     Active Substance: ESTROGENS
     Indication: HORMONE LEVEL ABNORMAL
     Dosage: UNK
  4. GENOTROPIN [Suspect]
     Active Substance: SOMATROPIN
     Indication: HYPOTHALAMO-PITUITARY DISORDER
     Dosage: 1 MG, DAILY  (5 CLICKS BY INJECTIONS)
     Route: 058
     Dates: start: 20051102

REACTIONS (1)
  - No adverse event [Unknown]
